FAERS Safety Report 12411997 (Version 1)
Quarter: 2016Q2

REPORT INFORMATION
  Report Type: Spontaneous
  Country: US (occurrence: None)
  Receive Date: 20160526
  Receipt Date: 20160526
  Transmission Date: 20160815
  Serious: Yes (Other)
  Sender: FDA-Public Use
  Company Number: None

PATIENT
  Sex: Female

DRUGS (1)
  1. GENERIC KEPPRA - LEVETIRACETAM [Suspect]
     Active Substance: LEVETIRACETAM
     Indication: SEIZURE
     Dosage: 5-6 YRS 750 MG PO
     Route: 048

REACTIONS (5)
  - Product substitution issue [None]
  - Condition aggravated [None]
  - Drug ineffective [None]
  - Seizure [None]
  - Therapeutic response changed [None]

NARRATIVE: CASE EVENT DATE: 2013
